FAERS Safety Report 19595034 (Version 7)
Quarter: 2021Q4

REPORT INFORMATION
  Report Type: Spontaneous
  Country: JP (occurrence: JP)
  Receive Date: 20210723
  Receipt Date: 20211229
  Transmission Date: 20220303
  Serious: Yes (Hospitalization, Other)
  Sender: FDA-Public Use
  Company Number: JP-MSD-M2021-17692

PATIENT
  Age: 74 Year
  Sex: Male

DRUGS (3)
  1. KEYTRUDA [Suspect]
     Active Substance: PEMBROLIZUMAB
     Indication: Lung squamous cell carcinoma stage IV
     Dosage: 200 MILLIGRAM, Q3W
     Route: 041
     Dates: start: 202105, end: 202106
  2. CARBOPLATIN [Concomitant]
     Active Substance: CARBOPLATIN
     Indication: Lung squamous cell carcinoma stage IV
     Dosage: UNK
     Route: 065
     Dates: start: 202105
  3. ABRAXANE [Concomitant]
     Active Substance: PACLITAXEL
     Indication: Lung squamous cell carcinoma stage IV
     Dosage: UNK
     Route: 065
     Dates: start: 202105

REACTIONS (4)
  - Eyelid ptosis [Recovered/Resolved]
  - Myopathy [Recovering/Resolving]
  - Rhabdomyolysis [Recovered/Resolved]
  - Electrocardiogram abnormal [Unknown]

NARRATIVE: CASE EVENT DATE: 20210701
